FAERS Safety Report 15798983 (Version 1)
Quarter: 2019Q1

REPORT INFORMATION
  Report Type: Spontaneous
  Country: SE (occurrence: SE)
  Receive Date: 20190108
  Receipt Date: 20190108
  Transmission Date: 20190417
  Serious: No
  Sender: FDA-Public Use
  Company Number: SE-JAZZ-2018-SE-016539

PATIENT
  Age: 38 Year
  Sex: Female

DRUGS (3)
  1. XYREM [Suspect]
     Active Substance: SODIUM OXYBATE
     Indication: PRODUCT USED FOR UNKNOWN INDICATION
     Dosage: 9 ML
     Route: 048
     Dates: start: 20160923, end: 20161021
  2. METHYLPHENIDATE. [Concomitant]
     Active Substance: METHYLPHENIDATE
  3. XYREM [Suspect]
     Active Substance: SODIUM OXYBATE
     Dosage: 12 ML
     Route: 048
     Dates: start: 20161021

REACTIONS (3)
  - Rhinorrhoea [Recovering/Resolving]
  - Throat irritation [Recovering/Resolving]
  - Pruritus [Recovering/Resolving]

NARRATIVE: CASE EVENT DATE: 20160923
